FAERS Safety Report 5423490-4 (Version None)
Quarter: 2007Q3

REPORT INFORMATION
  Report Type: 
  Country: None (occurrence: None)
  Receive Date: 20070823
  Receipt Date: 20070821
  Transmission Date: 20080115
  Serious: Yes (Death, Other)
  Sender: FDA-Public Use
  Company Number: JP-BRISTOL-MYERS SQUIBB COMPANY-13882576

PATIENT
  Age: 71 Year
  Sex: Male

DRUGS (1)
  1. METHOTREXATE [Suspect]
     Indication: RHEUMATOID ARTHRITIS
     Dosage: INCREASED TO 8 MG/WEEK.
     Dates: start: 20000201

REACTIONS (2)
  - INTERSTITIAL LUNG DISEASE [None]
  - LYMPHOPROLIFERATIVE DISORDER [None]
